FAERS Safety Report 12999354 (Version 2)
Quarter: 2017Q1

REPORT INFORMATION
  Report Type: Spontaneous
  Country: US (occurrence: US)
  Receive Date: 20161205
  Receipt Date: 20170109
  Transmission Date: 20170428
  Serious: No
  Sender: FDA-Public Use
  Company Number: US-GLAXOSMITHKLINE-US2016GSK179645

PATIENT
  Sex: Male

DRUGS (1)
  1. ADVAIR DISKUS [Suspect]
     Active Substance: FLUTICASONE PROPIONATE\SALMETEROL XINAFOATE
     Indication: ASTHMA
     Dosage: UNK, U
     Dates: start: 20160913, end: 201611

REACTIONS (8)
  - Ageusia [Unknown]
  - Pruritus [Unknown]
  - Blister [Recovering/Resolving]
  - Anosmia [Recovered/Resolved]
  - Dry skin [Not Recovered/Not Resolved]
  - Drug hypersensitivity [Recovering/Resolving]
  - Skin hypertrophy [Not Recovered/Not Resolved]
  - Rash [Recovering/Resolving]
